FAERS Safety Report 10142868 (Version 1)
Quarter: 2014Q2

REPORT INFORMATION
  Report Type: Spontaneous
  Country: FR (occurrence: FR)
  Receive Date: 20140430
  Receipt Date: 20140430
  Transmission Date: 20141212
  Serious: Yes (Hospitalization)
  Sender: FDA-Public Use
  Company Number: FR-ASTRAZENECA-2014SE28086

PATIENT
  Age: 21936 Day
  Sex: Female

DRUGS (6)
  1. PULMICORT [Suspect]
     Indication: DYSPNOEA
     Dosage: 1 MG/2 ML, 1 DF, ONCE/SINGLE ADMINISTRATION
     Route: 045
     Dates: start: 20131205, end: 20131205
  2. BRICANYL [Suspect]
     Indication: DYSPNOEA
     Dosage: 5 MG/2 ML, 1 DF, THREE TIMES A DAY
     Route: 045
     Dates: start: 20131205, end: 20131205
  3. ULTRAVIST [Suspect]
     Dosage: 370, 1 DF ONCE/SINGLE ADMINISTRATION
     Route: 042
     Dates: start: 20131205, end: 20131205
  4. ATROVENT [Suspect]
     Indication: DYSPNOEA
     Dosage: 0.25MG/2ML, 1 DF, THREE TIMES A DAY
     Route: 045
     Dates: start: 20131205, end: 20131209
  5. SOLUPRED [Suspect]
     Route: 048
     Dates: start: 20131205, end: 20131209
  6. TANAKAN [Concomitant]
     Indication: HAEMORRHAGIC STROKE
     Dosage: 40 MG (TWO DF PER DAY), FOR ONE MONTH
     Route: 048
     Dates: start: 201311, end: 20131209

REACTIONS (3)
  - Purpura [Not Recovered/Not Resolved]
  - Erythema [Not Recovered/Not Resolved]
  - Pruritus [Not Recovered/Not Resolved]
